FAERS Safety Report 8459501-1 (Version None)
Quarter: 2012Q2

REPORT INFORMATION
  Report Type: 
  Country: None (occurrence: None)
  Receive Date: 20120622
  Receipt Date: 20120617
  Transmission Date: 20120825
  Serious: Yes (Hospitalization, Other)
  Sender: FDA-Public Use
  Company Number: IL-ELI_LILLY_AND_COMPANY-IL201206006020

PATIENT
  Sex: Female
  Weight: 51 kg

DRUGS (6)
  1. MICROPIRIN [Concomitant]
  2. FORTEO [Suspect]
     Indication: OSTEOPOROSIS
     Dosage: 20 UG, QD
     Route: 058
     Dates: start: 20110504, end: 20120414
  3. VITAMIN D [Concomitant]
  4. CARDILOC [Concomitant]
  5. CALCIUM [Concomitant]
  6. PERCOCET [Concomitant]
     Indication: PAIN

REACTIONS (1)
  - HIP FRACTURE [None]
